FAERS Safety Report 7279722-3 (Version None)
Quarter: 2011Q1

REPORT INFORMATION
  Report Type: 
  Country: None (occurrence: None)
  Receive Date: 20110203
  Receipt Date: 20110203
  Transmission Date: 20110831
  Serious: Yes (Other)
  Sender: FDA-Public Use
  Company Number: None

PATIENT
  Age: 6 Year
  Sex: Female
  Weight: 19.0511 kg

DRUGS (1)
  1. AMOXICILLIN AND CLAVULANATE POTASSIUM [Suspect]
     Indication: STREPTOCOCCAL INFECTION
     Dosage: 1 TSP TWICE DAILY PO
     Route: 048
     Dates: start: 20110124, end: 20110201

REACTIONS (1)
  - RASH PRURITIC [None]
